FAERS Safety Report 9300362 (Version 1)
Quarter: 2013Q1

REPORT INFORMATION
  Report Type: Spontaneous
  Country: US (occurrence: None)
  Receive Date: 20121227
  Receipt Date: 20121227
  Transmission Date: 20140127
  Serious: Yes (Other)
  Sender: FDA-Public Use
  Company Number: PHEH2012US003960

PATIENT
  Age: 72 Year
  Sex: Male

DRUGS (1)
  1. EXJADE (*CGP 72670*)DISPENSIBLE TABLET [Suspect]
     Indication: IRON OVERLOAD
     Route: 048
     Dates: start: 20120201, end: 20120217

REACTIONS (2)
  - Pancytopenia [None]
  - Pollakiuria [None]
